FAERS Safety Report 16934458 (Version 6)
Quarter: 2023Q1

REPORT INFORMATION
  Report Type: Spontaneous
  Country: PL (occurrence: PL)
  Receive Date: 20191018
  Receipt Date: 20230221
  Transmission Date: 20230417
  Serious: Yes (Other)
  Sender: FDA-Public Use
  Company Number: None

PATIENT
  Age: 63 Year
  Sex: Male

DRUGS (9)
  1. PAZOPANIB [Interacting]
     Active Substance: PAZOPANIB
     Indication: Renal cancer
     Dosage: 800 MG, QD
     Route: 065
     Dates: start: 20180112
  2. PAZOPANIB [Interacting]
     Active Substance: PAZOPANIB
     Indication: Metastasis
     Dosage: 800 MG, QD (SECOND COURSE)
     Route: 065
  3. PAZOPANIB [Interacting]
     Active Substance: PAZOPANIB
     Dosage: UNK (THIRD, FOURTH AND FIFTH COURSE)
     Route: 065
  4. PAZOPANIB [Interacting]
     Active Substance: PAZOPANIB
     Dosage: UNK (SIXTH, SEVENTH, EIGHT AND 9TH COURSE)
     Route: 065
  5. PAZOPANIB [Interacting]
     Active Substance: PAZOPANIB
     Dosage: UNK (11TH COURSE)
     Route: 065
  6. AMOXICILLIN\CLAVULANIC ACID [Interacting]
     Active Substance: AMOXICILLIN\CLAVULANIC ACID
     Indication: Otitis media
     Dosage: UNK
     Route: 065
     Dates: start: 2018
  7. HYDROCHLOROTHIAZIDE\VALSARTAN [Suspect]
     Active Substance: HYDROCHLOROTHIAZIDE\VALSARTAN
     Indication: Hypertension
     Dosage: UNK
     Route: 065
  8. GLUCOPHAGE [Suspect]
     Active Substance: METFORMIN HYDROCHLORIDE
     Indication: Type 2 diabetes mellitus
     Dosage: 500 MG, QD
     Route: 065
  9. METOPROLOL SUCCINATE [Suspect]
     Active Substance: METOPROLOL SUCCINATE
     Indication: Hypertension
     Dosage: UNK
     Route: 065

REACTIONS (9)
  - Hepatotoxicity [Recovered/Resolved]
  - Otitis media [Unknown]
  - Neoplasm progression [Unknown]
  - Transaminases increased [Recovered/Resolved]
  - Drug interaction [Unknown]
  - Purulent discharge [Recovered/Resolved with Sequelae]
  - Scar [Unknown]
  - Back pain [Recovering/Resolving]
  - Blood creatinine increased [Recovered/Resolved]

NARRATIVE: CASE EVENT DATE: 20180101
